FAERS Safety Report 8445745-1 (Version None)
Quarter: 2012Q2

REPORT INFORMATION
  Report Type: 
  Country: None (occurrence: None)
  Receive Date: 20120618
  Receipt Date: 20120608
  Transmission Date: 20120825
  Serious: Yes (Hospitalization)
  Sender: FDA-Public Use
  Company Number: FR-GLAXOSMITHKLINE-B0806694A

PATIENT
  Age: 58 Year
  Sex: Male

DRUGS (2)
  1. ZOVIRAX [Suspect]
     Indication: HERPES VIRUS INFECTION
     Route: 065
  2. VALACYCLOVIR HYDROCHLORIDE [Suspect]
     Indication: HERPES VIRUS INFECTION
     Route: 048

REACTIONS (5)
  - DISORIENTATION [None]
  - COGNITIVE DISORDER [None]
  - ANXIETY [None]
  - IRRITABILITY [None]
  - CONFUSIONAL STATE [None]
